FAERS Safety Report 6433414-9 (Version None)
Quarter: 2009Q4

REPORT INFORMATION
  Report Type: 
  Country: None (occurrence: None)
  Receive Date: 20091109
  Receipt Date: 20020711
  Transmission Date: 20100525
  Serious: Yes (Other)
  Sender: FDA-Public Use
  Company Number: US-GENENTECH-102848

PATIENT
  Age: 39 Year
  Sex: Female
  Weight: 81 kg

DRUGS (6)
  1. TRASTUZUMAB [Suspect]
     Route: 042
     Dates: start: 20010101, end: 20010101
  2. TRASTUZUMAB [Suspect]
     Route: 042
     Dates: start: 20010101, end: 20011217
  3. DOXORUBICIN HCL [Concomitant]
     Route: 042
     Dates: start: 20000801, end: 20001201
  4. CYCLOPHOSPHAMIDE [Concomitant]
     Route: 042
     Dates: start: 20000801, end: 20001201
  5. PACLITAXEL [Concomitant]
     Route: 042
     Dates: start: 20010101, end: 20010401
  6. TAMOXIFEN [Concomitant]
     Route: 048

REACTIONS (3)
  - LEUKOENCEPHALOPATHY [None]
  - PERIPHERAL SENSORY NEUROPATHY [None]
  - SYNCOPE [None]
